FAERS Safety Report 9837589 (Version 1)
Quarter: 2014Q1

REPORT INFORMATION
  Report Type: Spontaneous
  Country: CA (occurrence: CA)
  Receive Date: 20140123
  Receipt Date: 20140123
  Transmission Date: 20141002
  Serious: Yes (Other)
  Sender: FDA-Public Use
  Company Number: PHHY2014CA007570

PATIENT
  Sex: Female

DRUGS (2)
  1. EXELON PATCH [Suspect]
     Indication: PARKINSON^S DISEASE
     Dosage: 4.6 MG (PATCH 5 CM2), UNK
     Route: 062
  2. INSULIN [Interacting]
     Indication: DIABETES MELLITUS
     Dosage: UNK UKN, UNK

REACTIONS (10)
  - Dementia [Unknown]
  - Aphasia [Unknown]
  - Dyspnoea [Unknown]
  - Pain [Unknown]
  - Insomnia [Unknown]
  - Dizziness [Unknown]
  - Tremor [Unknown]
  - Depression [Unknown]
  - Wrong technique in drug usage process [Unknown]
  - Inappropriate schedule of drug administration [Unknown]
